FAERS Safety Report 15647341 (Version 2)
Quarter: 2019Q2

REPORT INFORMATION
  Report Type: Report from Study
  Country: None (occurrence: IL)
  Receive Date: 20181122
  Receipt Date: 20190411
  Transmission Date: 20190711
  Serious: Yes (Hospitalization)
  Sender: FDA-Public Use
  Company Number: IL-ABBVIE-18S-082-2561467-00

PATIENT
  Age: 75 Year
  Sex: Male

DRUGS (1)
  1. DUODOPA [Suspect]
     Active Substance: CARBIDOPA\LEVODOPA
     Indication: PARKINSON^S DISEASE
     Dosage: CURRENT MD-10 ML, CURRENT FR- 4.5 ML/ HOUR,CURRENT ED- 2.5ML
     Route: 050
     Dates: start: 20120305

REACTIONS (4)
  - Volvulus [Unknown]
  - Fall [Recovered/Resolved]
  - Abdominal pain [Unknown]
  - Hip fracture [Recovered/Resolved]

NARRATIVE: CASE EVENT DATE: 20190326
